FAERS Safety Report 10611058 (Version 1)
Quarter: 2014Q4

REPORT INFORMATION
  Report Type: Spontaneous
  Country: IT (occurrence: IT)
  Receive Date: 20141126
  Receipt Date: 20141126
  Transmission Date: 20150529
  Serious: Yes (Other)
  Sender: FDA-Public Use
  Company Number: IT-ASTRAZENECA-2014SE88333

PATIENT
  Age: 21346 Day
  Sex: Female

DRUGS (3)
  1. ARIMIDEX [Suspect]
     Active Substance: ANASTROZOLE
     Indication: HORMONE SUPPRESSION THERAPY
     Route: 048
     Dates: start: 20140301, end: 20141106
  2. NEBISCON [Concomitant]
     Indication: HYPERTENSION
     Route: 048
     Dates: start: 20140101, end: 20141114
  3. NORADOX [Concomitant]
     Route: 048
     Dates: start: 20140801, end: 20141114

REACTIONS (3)
  - Movement disorder [Recovering/Resolving]
  - Arthralgia [Recovering/Resolving]
  - Alopecia [Recovering/Resolving]

NARRATIVE: CASE EVENT DATE: 20141008
